FAERS Safety Report 22142733 (Version 1)
Quarter: 2023Q1

REPORT INFORMATION
  Report Type: Spontaneous
  Country: FR (occurrence: FR)
  Receive Date: 20230327
  Receipt Date: 20230327
  Transmission Date: 20230417
  Serious: Yes (Hospitalization)
  Sender: FDA-Public Use
  Company Number: None

PATIENT
  Age: 68 Year
  Sex: Female

DRUGS (2)
  1. CLINDAMYCIN [Suspect]
     Active Substance: CLINDAMYCIN
     Indication: Osteitis
     Dosage: 1800 MILLIGRAM, QD
     Route: 048
     Dates: start: 20230203, end: 20230213
  2. OFLOXACIN [Concomitant]
     Active Substance: OFLOXACIN
     Indication: Osteitis
     Dosage: 400 MILLIGRAM, QD
     Route: 048
     Dates: start: 20230203

REACTIONS (1)
  - Vomiting [Recovered/Resolved]

NARRATIVE: CASE EVENT DATE: 20230201
